FAERS Safety Report 24846033 (Version 1)
Quarter: 2025Q1

REPORT INFORMATION
  Report Type: Report from Study
  Country: US (occurrence: US)
  Receive Date: 20250115
  Receipt Date: 20250115
  Transmission Date: 20250408
  Serious: Yes (Hospitalization, Other)
  Sender: MERCK
  Company Number: US-009507513-2406USA009039

PATIENT
  Sex: Female
  Weight: 99 kg

DRUGS (5)
  1. SOTATERCEPT [Suspect]
     Active Substance: SOTATERCEPT
     Indication: Pulmonary arterial hypertension
     Dosage: 0.7 MILLILITER, Q3W, STRENGTH 60 MG
     Route: 058
     Dates: start: 202405, end: 20241206
  2. WINREVAIR [Suspect]
     Active Substance: SOTATERCEPT-CSRK
     Indication: Pulmonary arterial hypertension
     Dosage: 0.7 MILLILITER, Q3W, STRENGTH 60 MG
     Route: 058
     Dates: start: 202405, end: 20241206
  3. WINREVAIR [Suspect]
     Active Substance: SOTATERCEPT-CSRK
     Indication: Pulmonary arterial hypertension
     Route: 058
     Dates: end: 20241206
  4. TADALAFIL [Concomitant]
     Active Substance: TADALAFIL
  5. OPSUMIT [Concomitant]
     Active Substance: MACITENTAN

REACTIONS (6)
  - Internal haemorrhage [Not Recovered/Not Resolved]
  - Epistaxis [Unknown]
  - Vomiting [Unknown]
  - Cough [Unknown]
  - Dyspnoea exertional [Unknown]
  - Weight increased [Unknown]

NARRATIVE: CASE EVENT DATE: 20240101
